FAERS Safety Report 9227966 (Version 2)
Quarter: 2013Q2

REPORT INFORMATION
  Report Type: Spontaneous
  Country: US (occurrence: US)
  Receive Date: 20130412
  Receipt Date: 20130605
  Transmission Date: 20140414
  Serious: Yes (Other)
  Sender: FDA-Public Use
  Company Number: US-PFIZER INC-2013115205

PATIENT
  Age: 47 Year
  Sex: Female
  Weight: 50.79 kg

DRUGS (11)
  1. LIPITOR [Suspect]
     Indication: BLOOD CHOLESTEROL INCREASED
     Dosage: 10 MG, 1X/DAY
     Route: 048
     Dates: start: 2000
  2. NEURONTIN [Concomitant]
     Dosage: UNK
  3. XARELTO [Concomitant]
     Dosage: UNK
  4. PAROXETIN [Concomitant]
     Dosage: UNK
  5. LISINOPRIL [Concomitant]
     Dosage: 12.5 MG, UNK
  6. MORPHINE [Concomitant]
     Dosage: 1000 MG, 2X/DAY
  7. LEVOTHYROXINE [Concomitant]
     Indication: THYROID DISORDER
     Dosage: UNK
  8. ISOSORBIDE [Concomitant]
     Dosage: UNK
  9. METOPROLOL [Concomitant]
     Dosage: UNK
  10. AMIODARONE [Concomitant]
     Dosage: 200 MG, UNK
  11. BABY ASPIRIN [Concomitant]
     Dosage: UNK

REACTIONS (1)
  - Diabetes mellitus [Not Recovered/Not Resolved]
